FAERS Safety Report 17148189 (Version 1)
Quarter: 2019Q4

REPORT INFORMATION
  Report Type: Report from Study
  Country: None (occurrence: CA)
  Receive Date: 20191212
  Receipt Date: 20191212
  Transmission Date: 20200122
  Serious: Yes (Other)
  Sender: FDA-Public Use
  Company Number: CA-ABBVIE-19K-028-3189098-00

PATIENT
  Sex: Male

DRUGS (2)
  1. HUMIRA [Suspect]
     Active Substance: ADALIMUMAB
     Indication: CROHN^S DISEASE
     Route: 058
     Dates: start: 20191007, end: 20191126
  2. HUMIRA [Suspect]
     Active Substance: ADALIMUMAB
     Route: 058
     Dates: start: 20191203

REACTIONS (6)
  - Circumcision [Unknown]
  - Haemorrhage [Unknown]
  - Burning sensation [Unknown]
  - Muscle spasms [Unknown]
  - Frequent bowel movements [Unknown]
  - Defaecation urgency [Unknown]

NARRATIVE: CASE EVENT DATE: 2019
